FAERS Safety Report 23626527 (Version 1)
Quarter: 2024Q1

REPORT INFORMATION
  Report Type: Other
  Country: CA (occurrence: CA)
  Receive Date: 20240313
  Receipt Date: 20240313
  Transmission Date: 20240409
  Serious: Yes (Hospitalization)
  Sender: FDA-Public Use
  Company Number: CA-PFIZER INC-202400062318

PATIENT
  Sex: Female

DRUGS (5)
  1. CYTARABINE [Suspect]
     Active Substance: CYTARABINE
     Indication: Chemotherapy
     Dosage: UNK
     Route: 065
  2. PIPERACILLIN SODIUM\TAZOBACTAM SODIUM [Suspect]
     Active Substance: PIPERACILLIN SODIUM\TAZOBACTAM SODIUM
     Indication: Antibiotic therapy
     Dosage: UNK
     Route: 065
  3. ENTECAVIR [Concomitant]
     Active Substance: ENTECAVIR
     Dosage: UNK
  4. GEMTUZUMAB OZOGAMICIN [Concomitant]
     Active Substance: GEMTUZUMAB OZOGAMICIN
     Dosage: UNK
  5. ISONIAZID [Concomitant]
     Active Substance: ISONIAZID
     Dosage: UNK

REACTIONS (7)
  - Bacteraemia [Unknown]
  - Dactylitis [Unknown]
  - Febrile neutropenia [Unknown]
  - Petechiae [Unknown]
  - Stomatitis [Unknown]
  - Off label use [Unknown]
  - Incorrect product administration duration [Unknown]
